FAERS Safety Report 10784760 (Version 1)
Quarter: 2015Q1

REPORT INFORMATION
  Report Type: Spontaneous
  Country: CA (occurrence: None)
  Receive Date: 20150209
  Receipt Date: 20150209
  Transmission Date: 20150721
  Serious: Yes (Other)
  Sender: FDA-Public Use
  Company Number: 2015-000172

PATIENT
  Sex: Female

DRUGS (1)
  1. LOLO [Suspect]
     Active Substance: ETHINYL ESTRADIOL\NORETHINDRONE ACETATE
     Route: 048
     Dates: start: 20141030

REACTIONS (4)
  - Ruptured ectopic pregnancy [None]
  - Pregnancy on oral contraceptive [None]
  - Drug ineffective [None]
  - Maternal exposure timing unspecified [None]

NARRATIVE: CASE EVENT DATE: 20150123
